FAERS Safety Report 12876615 (Version 5)
Quarter: 2016Q4

REPORT INFORMATION
  Report Type: Spontaneous
  Country: FR (occurrence: FR)
  Receive Date: 20161024
  Receipt Date: 20161123
  Transmission Date: 20170207
  Serious: Yes (Life-Threatening, Hospitalization, Other)
  Sender: FDA-Public Use
  Company Number: FR-PFIZER INC-2016486012

PATIENT
  Age: 59 Year
  Sex: Female

DRUGS (14)
  1. XARELTO [Suspect]
     Active Substance: RIVAROXABAN
     Dosage: 1 DF, DAILY
     Route: 048
     Dates: end: 20160929
  2. XANAX [Suspect]
     Active Substance: ALPRAZOLAM
     Dosage: 1 DF, 1X/DAY
     Route: 048
     Dates: end: 20160929
  3. PYOSTACINE [Suspect]
     Active Substance: PRISTINAMYCIN
     Dosage: 2 DF, 3X/DAY
     Route: 048
     Dates: start: 20160926, end: 20160929
  4. CARDENSIEL [Suspect]
     Active Substance: BISOPROLOL FUMARATE
     Dosage: UNK
     Route: 048
     Dates: end: 20160929
  5. ALDACTONE [Suspect]
     Active Substance: SPIRONOLACTONE
     Indication: HYPERTENSION
     Dosage: 1 DF, 1X/DAY
     Route: 048
     Dates: end: 20160929
  6. DAFALGAN [Suspect]
     Active Substance: ACETAMINOPHEN
     Dosage: 2 DF, 3X/DAY
     Route: 048
     Dates: end: 20160929
  7. LANTUS [Suspect]
     Active Substance: INSULIN GLARGINE
     Dosage: 1 DF, UNK
     Route: 058
     Dates: end: 20160929
  8. CORDARONE [Suspect]
     Active Substance: AMIODARONE HYDROCHLORIDE
     Dosage: UNK
     Route: 065
     Dates: end: 20160929
  9. LASILIX /00032601/ [Suspect]
     Active Substance: FUROSEMIDE
     Dosage: 100 MG, 2X/DAY
     Route: 048
     Dates: end: 20160929
  10. LEVOTHYROXINE SODIUM. [Suspect]
     Active Substance: LEVOTHYROXINE SODIUM
     Dosage: 100 MG, DAILY
     Route: 048
     Dates: end: 20160929
  11. METEOSPASMYL [Suspect]
     Active Substance: ALVERINE CITRATE\DIMETHICONE
     Dosage: 1 DF, 3X/DAY (3 DOSES A DAY)
     Route: 048
     Dates: end: 20160929
  12. IMPORTAL [Suspect]
     Active Substance: LACTITOL
     Dosage: UNK
     Route: 048
     Dates: end: 20160929
  13. METFORMIN HCL [Suspect]
     Active Substance: METFORMIN HYDROCHLORIDE
     Indication: TYPE 2 DIABETES MELLITUS
     Dosage: UNK
     Route: 048
     Dates: end: 20160929
  14. DIFFU K [Suspect]
     Active Substance: POTASSIUM CHLORIDE
     Dosage: 1 DF, 2X/DAY (2 DOSES DAILY)
     Route: 048
     Dates: end: 20160929

REACTIONS (3)
  - Lactic acidosis [Recovered/Resolved]
  - Hyperkalaemia [Recovered/Resolved]
  - Acute kidney injury [Recovered/Resolved]

NARRATIVE: CASE EVENT DATE: 20160929
